FAERS Safety Report 6285455-2 (Version None)
Quarter: 2009Q3

REPORT INFORMATION
  Report Type: 
  Country: None (occurrence: None)
  Receive Date: 20090727
  Receipt Date: 20090723
  Transmission Date: 20100115
  Serious: Yes (Other)
  Sender: FDA-Public Use
  Company Number: FR-WYE-G03750809

PATIENT
  Sex: Female
  Weight: 60 kg

DRUGS (1)
  1. TORISEL [Suspect]
     Indication: RENAL CANCER METASTATIC
     Dosage: 25 MG (FREQUENCY UNKNOWN)
     Route: 042
     Dates: start: 20090401, end: 20090501

REACTIONS (1)
  - ALVEOLITIS ALLERGIC [None]
